FAERS Safety Report 7995385-3 (Version None)
Quarter: 2011Q4

REPORT INFORMATION
  Report Type: 
  Country: None (occurrence: None)
  Receive Date: 20111220
  Receipt Date: 20111212
  Transmission Date: 20120403
  Serious: Yes (Hospitalization)
  Sender: FDA-Public Use
  Company Number: PR-ABBOTT-11P-131-0722128-00

PATIENT
  Sex: Male
  Weight: 62.652 kg

DRUGS (4)
  1. DIPHENHYDRAMINE HCL [Suspect]
     Indication: PRODUCT USED FOR UNKNOWN INDICATION
     Route: 048
     Dates: end: 20110301
  2. RISPERDAL [Suspect]
     Indication: ATTENTION DEFICIT/HYPERACTIVITY DISORDER
     Route: 048
     Dates: end: 20110301
  3. BUPROPION HCL [Suspect]
     Indication: DISTURBANCE IN ATTENTION
     Route: 048
     Dates: end: 20110301
  4. HUMIRA [Suspect]
     Indication: PSORIASIS
     Route: 058

REACTIONS (5)
  - HYPERTENSION [None]
  - PLATELET COUNT DECREASED [None]
  - IMMUNE SYSTEM DISORDER [None]
  - DENGUE FEVER [None]
  - PSYCHIATRIC SYMPTOM [None]
